FAERS Safety Report 10327847 (Version 1)
Quarter: 2014Q3

REPORT INFORMATION
  Report Type: Spontaneous
  Country: US (occurrence: None)
  Receive Date: 20140716
  Receipt Date: 20140716
  Transmission Date: 20150326
  Serious: Yes (Other)
  Sender: FDA-Public Use
  Company Number: None

PATIENT
  Age: 76 Year
  Sex: Female
  Weight: 57.5 kg

DRUGS (13)
  1. LORAZEPAM. [Concomitant]
     Active Substance: LORAZEPAM
  2. PREDNISONE. [Concomitant]
     Active Substance: PREDNISONE
  3. HYDROCHLOROTHIAZIDE. [Concomitant]
     Active Substance: HYDROCHLOROTHIAZIDE
  4. ONDANSETRON [Concomitant]
     Active Substance: ONDANSETRON
  5. CAPTOPRIL. [Concomitant]
     Active Substance: CAPTOPRIL
  6. POTASSIUM CHLORIDE. [Concomitant]
     Active Substance: POTASSIUM CHLORIDE
  7. DEXAMETHASONE. [Concomitant]
     Active Substance: DEXAMETHASONE
  8. LIDOCAINE-PRILOCAINE [Concomitant]
     Active Substance: LIDOCAINE\PRILOCAINE
  9. MEGESTROL (MEGACE) [Concomitant]
  10. METFORMIN [Concomitant]
     Active Substance: METFORMIN HYDROCHLORIDE
  11. PROCHLORPERAZINE. [Concomitant]
     Active Substance: PROCHLORPERAZINE
  12. TAXOL [Suspect]
     Active Substance: PACLITAXEL
     Indication: SARCOMA UTERUS
     Dosage: 138 MG IN NACL ?0.9 298 ML?INTRAVENOUS
     Route: 042
     Dates: start: 20140305, end: 20140630
  13. IPRATROPIUM [Concomitant]
     Active Substance: IPRATROPIUM

REACTIONS (2)
  - Neutropenia [None]
  - Toxic skin eruption [None]

NARRATIVE: CASE EVENT DATE: 20140630
